FAERS Safety Report 7482058-9 (Version None)
Quarter: 2011Q2

REPORT INFORMATION
  Report Type: 
  Country: None (occurrence: None)
  Receive Date: 20110516
  Receipt Date: 20110502
  Transmission Date: 20111010
  Serious: Yes (Other)
  Sender: FDA-Public Use
  Company Number: US-JNJFOC-20110500923

PATIENT
  Sex: Male

DRUGS (2)
  1. REMICADE [Suspect]
     Indication: CROHN'S DISEASE
     Dosage: 5MG/KG X 3 DOSES
     Route: 042
     Dates: end: 20110401
  2. REMICADE [Suspect]
     Route: 042

REACTIONS (1)
  - THROMBOCYTOPENIA [None]
